FAERS Safety Report 5645513-X (Version None)
Quarter: 2008Q1

REPORT INFORMATION
  Report Type: 
  Country: None (occurrence: None)
  Receive Date: 20080229
  Receipt Date: 20080226
  Transmission Date: 20080703
  Serious: Yes (Hospitalization, Disabling)
  Sender: FDA-Public Use
  Company Number: US-JNJFOC-20080204888

PATIENT
  Sex: Male
  Weight: 48 kg

DRUGS (5)
  1. REMICADE [Suspect]
     Dosage: MOST RECENT INFUSION
     Route: 042
  2. REMICADE [Suspect]
     Indication: COLITIS ULCERATIVE
     Dosage: INITIAL INFUSION
     Route: 042
  3. PREDNISONE TAB [Concomitant]
     Route: 065
  4. 5-ASA [Concomitant]
     Route: 048
  5. CANASA [Concomitant]
     Route: 065

REACTIONS (1)
  - COLITIS ULCERATIVE [None]
